FAERS Safety Report 17961828 (Version 1)
Quarter: 2020Q2

REPORT INFORMATION
  Report Type: Spontaneous
  Country: US (occurrence: US)
  Receive Date: 20200629
  Receipt Date: 20200629
  Transmission Date: 20200714
  Serious: No
  Sender: FDA-Public Use
  Company Number: US-GLAXOSMITHKLINE-US2020AMR112960

PATIENT
  Sex: Female

DRUGS (1)
  1. ZEJULA [Suspect]
     Active Substance: NIRAPARIB
     Indication: OVARIAN CANCER
     Dosage: 300 MG, QD
     Dates: start: 20200502

REACTIONS (7)
  - Blister [Unknown]
  - Blood blister [Unknown]
  - Injury [Unknown]
  - Productive cough [Unknown]
  - Decreased appetite [Unknown]
  - Nausea [Unknown]
  - Depression [Unknown]
